FAERS Safety Report 7741980-6 (Version None)
Quarter: 2011Q3

REPORT INFORMATION
  Report Type: 
  Country: None (occurrence: None)
  Receive Date: 20110912
  Receipt Date: 20110905
  Transmission Date: 20111222
  Serious: Yes (Death, Life-Threatening)
  Sender: FDA-Public Use
  Company Number: DE-JNJFOC-20100601934

PATIENT
  Age: 64 Year
  Sex: Female

DRUGS (3)
  1. HALOPERIDOL [Suspect]
     Indication: PROPHYLAXIS
     Route: 048
     Dates: start: 20100104
  2. EUNERPAN [Suspect]
     Indication: PROPHYLAXIS
     Route: 048
     Dates: start: 20100104
  3. VITAMIN B1 TAB [Concomitant]
     Route: 030

REACTIONS (2)
  - ACUTE HEPATIC FAILURE [None]
  - CARDIAC DEATH [None]
